FAERS Safety Report 7265346-0 (Version None)
Quarter: 2011Q1

REPORT INFORMATION
  Report Type: 
  Country: None (occurrence: None)
  Receive Date: 20110131
  Receipt Date: 20110121
  Transmission Date: 20110831
  Serious: Yes (Hospitalization, Other)
  Sender: FDA-Public Use
  Company Number: US-ROCHE-485889

PATIENT
  Sex: Female
  Weight: 71.7 kg

DRUGS (12)
  1. ORTHO TRI-CYCLEN [Concomitant]
  2. MULTI-VITAMIN [Concomitant]
     Dosage: DOSAGE REPROTED AS QD.
     Dates: start: 19980101
  3. ACCUTANE [Suspect]
     Route: 048
     Dates: start: 19941111, end: 19950120
  4. ORTHO-NOVUM 7/7/7-21 [Concomitant]
     Dates: start: 19930101, end: 19980101
  5. AQUAPHOR [Concomitant]
  6. ACCUTANE [Suspect]
     Route: 048
     Dates: start: 20000701, end: 20001001
  7. VITAMIN B [Concomitant]
     Dates: start: 19981101
  8. ASCORBIC ACID [Concomitant]
     Dates: start: 19981101
  9. ALEVE [Concomitant]
  10. ACCUTANE [Suspect]
     Route: 048
     Dates: start: 19981001, end: 19990101
  11. ADVIL [Concomitant]
     Dates: start: 19960101
  12. ACETAMINOPHEN [Concomitant]
     Dosage: REPORTED AS ACETAMINOPHEN (TYLENOL).
     Dates: start: 19960101

REACTIONS (12)
  - PERINEAL LACERATION [None]
  - POSTPARTUM HAEMORRHAGE [None]
  - COLITIS ULCERATIVE [None]
  - GESTATIONAL HYPERTENSION [None]
  - COLITIS [None]
  - INFLAMMATORY BOWEL DISEASE [None]
  - ANXIETY [None]
  - RECTAL HAEMORRHAGE [None]
  - OEDEMA [None]
  - ANAEMIA [None]
  - ARTHRALGIA [None]
  - INSOMNIA [None]
